FAERS Safety Report 4964389-7 (Version None)
Quarter: 2006Q2

REPORT INFORMATION
  Report Type: 
  Country: None (occurrence: None)
  Receive Date: 20060406
  Receipt Date: 20060327
  Transmission Date: 20061013
  Serious: Yes (Hospitalization)
  Sender: FDA-Public Use
  Company Number: PHFR2006GB01268

PATIENT
  Age: 60 Year
  Sex: Male

DRUGS (7)
  1. DICLOFENAC [Suspect]
     Dosage: 100 MG, PRN
     Route: 054
     Dates: start: 20060101, end: 20060217
  2. AMLODIPINE [Concomitant]
     Dosage: 5 MG, QD (EVERY MORNING)
     Route: 048
  3. LISINOPRIL [Concomitant]
     Dosage: 2.5 MG, QD (MORNING)
     Route: 048
  4. OMEPRAZOLE [Concomitant]
     Dosage: 20 MG, QD (NOCTE)
     Route: 065
  5. DOXAZOSIN [Concomitant]
     Dosage: 2 MG, QD (MANE)
     Route: 065
  6. TRAMADOL HCL [Concomitant]
     Dosage: PRN
     Route: 065
  7. CO-CODAMOL [Concomitant]
     Dosage: 30/500MG PRN
     Route: 065

REACTIONS (3)
  - BLOOD AMYLASE INCREASED [None]
  - CHOLELITHIASIS [None]
  - PANCREATITIS [None]
